FAERS Safety Report 10100676 (Version 1)
Quarter: 2014Q2

REPORT INFORMATION
  Report Type: Spontaneous
  Country: GB (occurrence: GB)
  Receive Date: 20140423
  Receipt Date: 20140423
  Transmission Date: 20141212
  Serious: Yes (Other)
  Sender: FDA-Public Use
  Company Number: GB-MYLANLABS-2014S1008448

PATIENT
  Age: 60 Year
  Sex: Female

DRUGS (8)
  1. ENTACAPONE [Suspect]
     Dosage: 04 DF, DAILY (800 MG)
     Dates: start: 20121214
  2. ELDEPRYL [Suspect]
     Indication: PARKINSON^S DISEASE
     Dosage: 10 MG, DAILY
     Route: 048
     Dates: start: 20070810
  3. ADCAL D3 [Concomitant]
     Dosage: 02 DF, DAILY
  4. ALENDRONIC ACID [Concomitant]
     Dosage: 01 W
  5. MADOPAR [Concomitant]
     Dosage: 62.5 (UNIT UNSPECIFIED)
  6. MADOPAR CR [Concomitant]
     Dosage: UNK
  7. PREGABALIN [Concomitant]
     Dosage: 300 (UNIT UNSPECIFIED)
  8. SOLIFENACIN [Concomitant]
     Dosage: 01 DF

REACTIONS (3)
  - Ovarian cancer [Not Recovered/Not Resolved]
  - Musculoskeletal stiffness [Unknown]
  - Myalgia [Not Recovered/Not Resolved]
